FAERS Safety Report 22891873 (Version 3)
Quarter: 2023Q4

REPORT INFORMATION
  Report Type: Spontaneous
  Country: US (occurrence: US)
  Receive Date: 20230901
  Receipt Date: 20231207
  Transmission Date: 20240109
  Serious: Yes (Other)
  Sender: FDA-Public Use
  Company Number: US-BRISTOL-MYERS SQUIBB COMPANY-2023-123009

PATIENT
  Age: 44 Year
  Sex: Female

DRUGS (2)
  1. ZEPOSIA [Suspect]
     Active Substance: OZANIMOD HYDROCHLORIDE
     Indication: Multiple sclerosis
     Dosage: DAILY.
     Route: 048
     Dates: start: 202305
  2. ZEPOSIA [Suspect]
     Active Substance: OZANIMOD HYDROCHLORIDE
     Dosage: MAINTENANCE DOSE
     Dates: start: 202306

REACTIONS (4)
  - Drug ineffective [Unknown]
  - Neuropathy peripheral [Unknown]
  - Contusion [Unknown]
  - Illness [Unknown]
